FAERS Safety Report 10428685 (Version 3)
Quarter: 2014Q3

REPORT INFORMATION
  Report Type: Spontaneous
  Country: JP (occurrence: JP)
  Receive Date: 20140903
  Receipt Date: 20140926
  Transmission Date: 20150326
  Serious: Yes (Hospitalization, Other)
  Sender: FDA-Public Use
  Company Number: JP-TAKEDA-2014TUS008189

PATIENT
  Age: 61 Year
  Sex: Male
  Weight: 73.4 kg

DRUGS (4)
  1. OLMETEC [Suspect]
     Active Substance: OLMESARTAN MEDOXOMIL
     Dosage: 20 MG, QD
     Route: 048
     Dates: start: 20140116, end: 20140318
  2. FEBURIC [Suspect]
     Active Substance: FEBUXOSTAT
     Dosage: 20 MG, QD
     Route: 048
     Dates: start: 20140220, end: 20140318
  3. OLMETEC [Suspect]
     Active Substance: OLMESARTAN MEDOXOMIL
     Indication: HYPERTENSION
     Dosage: 10 MG, QD
     Route: 048
     Dates: start: 20131211, end: 20140115
  4. FEBURIC [Suspect]
     Active Substance: FEBUXOSTAT
     Indication: GOUT
     Dosage: 10 MG, QD
     Route: 048
     Dates: start: 20131112, end: 20140219

REACTIONS (4)
  - Liver disorder [Recovering/Resolving]
  - Hypotension [Recovered/Resolved]
  - Ketoacidosis [Recovering/Resolving]
  - Renal failure acute [Recovering/Resolving]

NARRATIVE: CASE EVENT DATE: 20140318
